FAERS Safety Report 5505283-2 (Version None)
Quarter: 2007Q4

REPORT INFORMATION
  Report Type: 
  Country: None (occurrence: None)
  Receive Date: 20071102
  Receipt Date: 20071029
  Transmission Date: 20080405
  Serious: Yes (Hospitalization, Other)
  Sender: FDA-Public Use
  Company Number: DE-JNJFOC-20071001133

PATIENT
  Sex: Male
  Weight: 49.4 kg

DRUGS (1)
  1. CONCERTA [Suspect]
     Indication: DRUG USE FOR UNKNOWN INDICATION
     Route: 048

REACTIONS (5)
  - BLEPHAROSPASM [None]
  - DYSKINESIA [None]
  - PARAESTHESIA [None]
  - SPEECH DISORDER [None]
  - TREMOR [None]
